FAERS Safety Report 17598104 (Version 1)
Quarter: 2020Q1

REPORT INFORMATION
  Report Type: Spontaneous
  Country: US (occurrence: US)
  Receive Date: 20200327
  Receipt Date: 20200327
  Transmission Date: 20200409
  Serious: No
  Sender: FDA-Public Use
  Company Number: None

PATIENT
  Age: 46 Year
  Sex: Female

DRUGS (1)
  1. AZITHROMYCIN TABLETS USP 250 MG [Suspect]
     Active Substance: AZITHROMYCIN MONOHYDRATE
     Indication: RESPIRATORY TRACT INFECTION
     Dosage: ?          QUANTITY:6 TABLET(S);OTHER FREQUENCY:2 TABS DAY 1, 1 DA;?
     Route: 048
     Dates: start: 20200327

REACTIONS (5)
  - Asthenia [None]
  - Dyskinesia [None]
  - Muscle twitching [None]
  - Tremor [None]
  - Feeling abnormal [None]

NARRATIVE: CASE EVENT DATE: 20200327
